FAERS Safety Report 7405756-1 (Version None)
Quarter: 2011Q2

REPORT INFORMATION
  Report Type: 
  Country: None (occurrence: None)
  Receive Date: 20110406
  Receipt Date: 20110406
  Transmission Date: 20111010
  Serious: Yes (Life-Threatening, Hospitalization, Disabling)
  Sender: FDA-Public Use
  Company Number: None

PATIENT
  Sex: Female
  Weight: 72.5755 kg

DRUGS (2)
  1. SYMBYAX [Suspect]
     Indication: MAJOR DEPRESSION
     Dosage: 12/50 PO QD
     Route: 048
     Dates: start: 20040101, end: 20050101
  2. SYMBYAX [Suspect]
     Indication: OBSESSIVE-COMPULSIVE DISORDER
     Dosage: 12/50 PO QD
     Route: 048
     Dates: start: 20040101, end: 20050101

REACTIONS (8)
  - WEIGHT INCREASED [None]
  - BANKRUPTCY [None]
  - DYSPNOEA [None]
  - RENAL FAILURE [None]
  - LOSS OF EMPLOYMENT [None]
  - PNEUMONIA [None]
  - COMA [None]
  - DIABETES MELLITUS [None]
